FAERS Safety Report 6014851-3 (Version None)
Quarter: 2008Q4

REPORT INFORMATION
  Report Type: 
  Country: None (occurrence: None)
  Receive Date: 20081219
  Receipt Date: 20081216
  Transmission Date: 20090506
  Serious: No
  Sender: FDA-Public Use
  Company Number: JP-ABBOTT-08P-087-0484617-00

PATIENT
  Sex: Female

DRUGS (7)
  1. FENOFIBRATE [Suspect]
     Indication: HYPERLIPIDAEMIA
     Route: 048
     Dates: start: 20021128, end: 20081106
  2. BERAPROST SODIUM [Suspect]
     Indication: DRUG USE FOR UNKNOWN INDICATION
     Route: 048
     Dates: start: 20020204, end: 20081021
  3. FLUVASTATIN SODIUM [Suspect]
     Indication: HYPERLIPIDAEMIA
     Route: 048
     Dates: start: 20020204, end: 20081106
  4. ACETYLSALICYLIC ACID [Suspect]
     Indication: ARTERIAL OCCLUSIVE DISEASE
     Route: 048
     Dates: start: 20030901
  5. FLUVOXAMINE MALEATE [Concomitant]
     Indication: DRUG USE FOR UNKNOWN INDICATION
     Dates: start: 20060113
  6. PROPIVERINE HYDROCHLORIDE [Concomitant]
     Indication: DRUG USE FOR UNKNOWN INDICATION
     Dates: start: 20040127
  7. SODIUM RISEDRONATE HYDRATE [Concomitant]
     Indication: DRUG USE FOR UNKNOWN INDICATION
     Dates: start: 20061110

REACTIONS (1)
  - INTERSTITIAL LUNG DISEASE [None]
